FAERS Safety Report 7561313-8 (Version None)
Quarter: 2011Q2

REPORT INFORMATION
  Report Type: 
  Country: None (occurrence: None)
  Receive Date: 20110621
  Receipt Date: 20110322
  Transmission Date: 20111010
  Serious: No
  Sender: FDA-Public Use
  Company Number: US-ASTRAZENECA-2011SE16620

PATIENT
  Age: 48 Year
  Sex: Female

DRUGS (2)
  1. PULMICORT FLEXHALER [Suspect]
     Route: 055
  2. SYMBICORT [Suspect]
     Route: 055

REACTIONS (2)
  - INFECTION [None]
  - OSTEOARTHRITIS [None]
